FAERS Safety Report 4723527-1 (Version None)
Quarter: 2005Q3

REPORT INFORMATION
  Report Type: 
  Country: None (occurrence: None)
  Receive Date: 20050721
  Receipt Date: 20050721
  Transmission Date: 20060218
  Serious: Yes (Other)
  Sender: FDA-Public Use
  Company Number: None

PATIENT
  Age: 42 Year
  Sex: Male
  Weight: 97.5234 kg

DRUGS (2)
  1. PAROXETINE HCL [Suspect]
     Indication: ANXIETY
     Dosage: 15MG 1 PER NIGHT BUCCAL
     Route: 002
     Dates: start: 19960101, end: 20050720
  2. PAROXETINE HCL [Suspect]
     Indication: OBSESSIVE-COMPULSIVE DISORDER
     Dosage: 15MG 1 PER NIGHT BUCCAL
     Route: 002
     Dates: start: 19960101, end: 20050720

REACTIONS (4)
  - DRUG DEPENDENCE [None]
  - EYE MOVEMENT DISORDER [None]
  - NERVOUS SYSTEM DISORDER [None]
  - PARAESTHESIA [None]
